FAERS Safety Report 6982704-X (Version None)
Quarter: 2010Q3

REPORT INFORMATION
  Report Type: 
  Country: None (occurrence: None)
  Receive Date: 20100914
  Receipt Date: 20100308
  Transmission Date: 20110219
  Serious: Yes (Other)
  Sender: FDA-Public Use
  Company Number: US-PFIZER INC-2010030628

PATIENT
  Sex: Female
  Weight: 90.703 kg

DRUGS (3)
  1. LYRICA [Suspect]
     Indication: FIBROMYALGIA
     Dosage: 25 MG, 3X/DAY
     Route: 048
     Dates: start: 20091201, end: 20100201
  2. LYRICA [Suspect]
     Indication: NEURALGIA
     Dosage: 50 MG, 3X/DAY
  3. LYRICA [Suspect]
     Dosage: 100 MG, 3X/DAY
     Route: 048
     Dates: end: 20100201

REACTIONS (5)
  - DRUG CLEARANCE DECREASED [None]
  - DYSPNOEA [None]
  - OEDEMA PERIPHERAL [None]
  - RASH [None]
  - SWELLING FACE [None]
